FAERS Safety Report 18161744 (Version 1)
Quarter: 2020Q3

REPORT INFORMATION
  Report Type: Spontaneous
  Country: US (occurrence: US)
  Receive Date: 20200817
  Receipt Date: 20200817
  Transmission Date: 20201103
  Serious: No
  Sender: FDA-Public Use
  Company Number: None

PATIENT
  Age: 77 Year
  Sex: Female
  Weight: 75.75 kg

DRUGS (1)
  1. ENBREL [Suspect]
     Active Substance: ETANERCEPT
     Indication: RHEUMATOID ARTHRITIS
     Dosage: AAS DIRECTED
     Route: 058
     Dates: start: 201906

REACTIONS (4)
  - Therapy interrupted [None]
  - Illness [None]
  - Blood sodium decreased [None]
  - Bacterial infection [None]
